FAERS Safety Report 5156807-9 (Version None)
Quarter: 2006Q4

REPORT INFORMATION
  Report Type: 
  Country: None (occurrence: None)
  Receive Date: 20061115
  Receipt Date: 20061108
  Transmission Date: 20070319
  Serious: Yes (Other)
  Sender: FDA-Public Use
  Company Number: 163-20785-06020395

PATIENT
  Age: 72 Year
  Sex: Male

DRUGS (2)
  1. THALOMID [Suspect]
     Indication: MYELODYSPLASTIC SYNDROME
     Dosage: 50 MG ALTERNATING WITH 100 MG, QHS, ORAL
     Route: 048
     Dates: start: 20030424
  2. THALOMID [Suspect]
     Indication: REFRACTORY ANAEMIA
     Dosage: 50 MG ALTERNATING WITH 100 MG, QHS, ORAL
     Route: 048
     Dates: start: 20030424

REACTIONS (6)
  - BLOOD COUNT ABNORMAL [None]
  - CONSTIPATION [None]
  - HYPOAESTHESIA [None]
  - LUNG NEOPLASM MALIGNANT [None]
  - NERVOUSNESS [None]
  - OEDEMA PERIPHERAL [None]
